FAERS Safety Report 18113439 (Version 1)
Quarter: 2020Q3

REPORT INFORMATION
  Report Type: Spontaneous
  Country: US (occurrence: US)
  Receive Date: 20200805
  Receipt Date: 20200805
  Transmission Date: 20201103
  Serious: Yes (Other)
  Sender: FDA-Public Use
  Company Number: US-PFIZER INC-2020295066

PATIENT
  Age: 75 Year
  Sex: Female

DRUGS (3)
  1. XELJANZ [Suspect]
     Active Substance: TOFACITINIB CITRATE
     Indication: RHEUMATOID ARTHRITIS
     Dosage: 5 MG, 2X/DAY
  2. XELJANZ [Suspect]
     Active Substance: TOFACITINIB CITRATE
     Dosage: 20 MG, ALTERNATE DAY (ALTERNATING 5 MG TWICE A DAY AND 10 MG TWICE A DAY)
  3. XELJANZ [Suspect]
     Active Substance: TOFACITINIB CITRATE
     Dosage: 10 MG, ALTERNATE DAY (ALTERNATING 5 MG TWICE A DAY AND 10 MG TWICE A DAY)

REACTIONS (4)
  - Pneumonia [Recovered/Resolved]
  - Interstitial lung disease [Unknown]
  - Off label use [Unknown]
  - Product use issue [Unknown]
